FAERS Safety Report 16077270 (Version 1)
Quarter: 2019Q1

REPORT INFORMATION
  Report Type: Report from Study
  Country: DE (occurrence: DE)
  Receive Date: 20190315
  Receipt Date: 20190315
  Transmission Date: 20190418
  Serious: Yes (Hospitalization)
  Sender: FDA-Public Use
  Company Number: DE-PFIZER INC-2018103986

PATIENT
  Age: 73 Year
  Sex: Male
  Weight: 57.1 kg

DRUGS (9)
  1. OXALIPLATIN. [Suspect]
     Active Substance: OXALIPLATIN
     Indication: COLORECTAL CANCER METASTATIC
     Dosage: 223.6 MG, EVERY 3 WEEKS
     Route: 042
     Dates: start: 20130128, end: 20130311
  2. PANTOZOL [Concomitant]
     Active Substance: PANTOPRAZOLE SODIUM
     Indication: ABDOMINAL PAIN UPPER
     Route: 065
  3. TAVOR (LORAZEPAM) [Concomitant]
     Active Substance: LORAZEPAM
     Dosage: 0.1 MG, UNK
     Route: 065
     Dates: start: 20140831
  4. XELODA [Suspect]
     Active Substance: CAPECITABINE
     Dosage: 1000 MG, UNK
     Route: 042
     Dates: start: 20130311, end: 20130324
  5. XELODA [Suspect]
     Active Substance: CAPECITABINE
     Dosage: 1720 MG, 1-14 DAYS AFTER BEVACIZUMAB INFUSION
     Route: 065
     Dates: start: 20130128, end: 20130210
  6. NOVALGIN (METAMIZOLE SODIUM) [Concomitant]
     Active Substance: METAMIZOLE SODIUM
     Indication: PAIN
     Route: 065
  7. AVASTIN [Suspect]
     Active Substance: BEVACIZUMAB
     Indication: COLORECTAL CANCER METASTATIC
     Dosage: 487.5 MG, EVERY 3 WEEKS
     Route: 042
     Dates: start: 20130128, end: 20130311
  8. XELODA [Suspect]
     Active Substance: CAPECITABINE
     Indication: COLORECTAL CANCER METASTATIC
     Dosage: 1000 MG, UNK
     Route: 042
     Dates: start: 20130218, end: 20130303
  9. TAMSULOSIN [Concomitant]
     Active Substance: TAMSULOSIN
     Indication: BENIGN PROSTATIC HYPERPLASIA
     Route: 065

REACTIONS (9)
  - Erythema multiforme [Not Recovered/Not Resolved]
  - Diarrhoea [Recovered/Resolved]
  - General physical health deterioration [Recovered/Resolved]
  - Infection [Recovered/Resolved]
  - Weight decreased [Not Recovered/Not Resolved]
  - Dyspnoea [Recovered/Resolved]
  - Palmar-plantar erythrodysaesthesia syndrome [Not Recovered/Not Resolved]
  - Pyrexia [Recovered/Resolved]
  - Fatigue [Not Recovered/Not Resolved]

NARRATIVE: CASE EVENT DATE: 20130402
